FAERS Safety Report 9925216 (Version 2)
Quarter: 2015Q3

REPORT INFORMATION
  Report Type: Spontaneous
  Country: TR (occurrence: TR)
  Receive Date: 20140226
  Receipt Date: 20150924
  Transmission Date: 20151125
  Serious: Yes (Other)
  Sender: FDA-Public Use
  Company Number: TR-PFIZER INC-2014051124

PATIENT
  Age: 34 Year
  Sex: Male

DRUGS (4)
  1. PREGABALIN. [Suspect]
     Active Substance: PREGABALIN
     Indication: ANXIETY
     Dosage: 15600 MG, DAILY (104 CAPSULES X150 MG)
  2. PREGABALIN. [Suspect]
     Active Substance: PREGABALIN
     Dosage: 7800 MG, (52 CAPSULES X150 MG)
     Route: 048
  3. PREGABALIN. [Suspect]
     Active Substance: PREGABALIN
     Dosage: 1950 MG (13 CAPSULES X150 MG)
     Route: 048
  4. COCAINE [Concomitant]
     Active Substance: COCAINE
     Dosage: 1 G, (SIX TIMES WITHIN THE LAST MONTH)

REACTIONS (24)
  - Drug dependence [Recovered/Resolved]
  - Hallucination, visual [Recovered/Resolved]
  - Hyperhidrosis [Unknown]
  - Vomiting [Unknown]
  - Hypersomnia [Unknown]
  - Suicidal ideation [Recovered/Resolved]
  - Aggression [Recovered/Resolved]
  - Impaired work ability [Unknown]
  - Family stress [Unknown]
  - Affective disorder [Recovered/Resolved]
  - Drug abuse [Unknown]
  - Decreased appetite [Unknown]
  - Intentional overdose [Unknown]
  - Drug withdrawal syndrome [Recovered/Resolved]
  - Generalised anxiety disorder [Unknown]
  - Apathy [Unknown]
  - Palpitations [Unknown]
  - Depressed mood [Recovered/Resolved]
  - Euphoric mood [Unknown]
  - Grandiosity [Unknown]
  - Anxiety [Recovered/Resolved]
  - Tremor [Unknown]
  - Anhedonia [Unknown]
  - Fatigue [Unknown]
